FAERS Safety Report 5707241-1 (Version None)
Quarter: 2008Q2

REPORT INFORMATION
  Report Type: 
  Country: None (occurrence: None)
  Receive Date: 20080414
  Receipt Date: 20080414
  Transmission Date: 20081010
  Serious: Yes (Other)
  Sender: FDA-Public Use
  Company Number: None

PATIENT
  Age: 51 Year
  Sex: Female
  Weight: 74.8435 kg

DRUGS (1)
  1. LITHIUM BICARBONATE 600 MG 2X'S DAILY FIFTEEN YEARS [Suspect]
     Indication: BIPOLAR DISORDER
     Dosage: 600 MG 2X'S DAILY PO
     Route: 048
     Dates: start: 19900714, end: 20060301

REACTIONS (2)
  - RENAL FAILURE CHRONIC [None]
  - THYROID DISORDER [None]
